FAERS Safety Report 6993127-1 (Version None)
Quarter: 2010Q3

REPORT INFORMATION
  Report Type: 
  Country: None (occurrence: None)
  Receive Date: 20100917
  Receipt Date: 20100305
  Transmission Date: 20110219
  Serious: No
  Sender: FDA-Public Use
  Company Number: US-ASTRAZENECA-2010SE09819

PATIENT
  Age: 40 Year
  Sex: Female
  Weight: 101.2 kg

DRUGS (7)
  1. SEROQUEL [Suspect]
     Indication: SLEEP DISORDER
     Route: 048
     Dates: start: 20050101
  2. HALCION [Concomitant]
     Indication: SLEEP DISORDER
  3. ELAVIL [Concomitant]
     Indication: SLEEP DISORDER
  4. THORAZINE [Concomitant]
     Indication: SLEEP DISORDER
  5. INDERAL [Concomitant]
     Indication: TACHYCARDIA
  6. MORPHINE [Concomitant]
     Indication: FIBROMYALGIA
  7. DEMEROL [Concomitant]
     Indication: FIBROMYALGIA

REACTIONS (3)
  - HALLUCINATION [None]
  - SOMNAMBULISM [None]
  - WEIGHT INCREASED [None]
